FAERS Safety Report 9276984 (Version 2)
Quarter: 2013Q2

REPORT INFORMATION
  Report Type: Spontaneous
  Country: US (occurrence: None)
  Receive Date: 20130501
  Receipt Date: 20130603
  Transmission Date: 20140414
  Serious: Yes (Other)
  Sender: FDA-Public Use
  Company Number: 2013P1005075

PATIENT
  Age: 47 Year
  Sex: Female

DRUGS (1)
  1. INFUMORPH [Suspect]
     Indication: PAIN

REACTIONS (2)
  - Drug ineffective [None]
  - Device dislocation [None]
